FAERS Safety Report 9201834 (Version 2)
Quarter: 2014Q1

REPORT INFORMATION
  Report Type: Spontaneous
  Country: US (occurrence: US)
  Receive Date: 20130401
  Receipt Date: 20140128
  Transmission Date: 20141002
  Serious: Yes (Hospitalization, Other)
  Sender: FDA-Public Use
  Company Number: US-BAYER-2013-038239

PATIENT
  Age: 24 Year
  Sex: Female

DRUGS (10)
  1. YAZ [Suspect]
     Dosage: UNK
     Dates: start: 200802, end: 201007
  2. YASMIN [Suspect]
     Dosage: UNK
     Dates: start: 200802, end: 201007
  3. OCELLA [Suspect]
     Dosage: UNK
     Dates: start: 200802, end: 201007
  4. GIANVI [Suspect]
     Dosage: UNK
     Dates: start: 200802, end: 201007
  5. HYOSCYAMINE [Concomitant]
  6. CYMBALTA [Concomitant]
  7. NEXIUM [Concomitant]
  8. STOOL SOFTENER [Concomitant]
  9. CLARITIN [Concomitant]
  10. MIRALAX [Concomitant]

REACTIONS (4)
  - Cholecystectomy [None]
  - Cholecystitis chronic [None]
  - Injury [None]
  - Pain [None]
